FAERS Safety Report 7199749-X (Version None)
Quarter: 2010Q4

REPORT INFORMATION
  Report Type: 
  Country: None (occurrence: None)
  Receive Date: 20101228
  Receipt Date: 20101220
  Transmission Date: 20110411
  Serious: Yes (Death, Disabling, Other)
  Sender: FDA-Public Use
  Company Number: PHHY2010US87354

PATIENT
  Sex: Female

DRUGS (1)
  1. EXJADE [Suspect]

REACTIONS (4)
  - BLINDNESS UNILATERAL [None]
  - CARDIAC VALVE DISEASE [None]
  - LEUKAEMIA [None]
  - METAMORPHOPSIA [None]
